FAERS Safety Report 8181746-9 (Version None)
Quarter: 2012Q1

REPORT INFORMATION
  Report Type: 
  Country: None (occurrence: None)
  Receive Date: 20120302
  Receipt Date: 20111130
  Transmission Date: 20120608
  Serious: No
  Sender: FDA-Public Use
  Company Number: US-AMGEN-USASP2011063372

PATIENT
  Age: 89 Year
  Sex: Male

DRUGS (4)
  1. NPLATE [Suspect]
     Indication: IDIOPATHIC THROMBOCYTOPENIC PURPURA
     Dosage: UNK UNK, QWK
     Dates: start: 20110101
  2. PRILOSEC [Concomitant]
  3. LUTEIN [Concomitant]
  4. MULTI-VITAMIN [Concomitant]

REACTIONS (6)
  - MUSCULAR WEAKNESS [None]
  - DYSGEUSIA [None]
  - ASTHENIA [None]
  - DEMENTIA [None]
  - MOOD ALTERED [None]
  - FATIGUE [None]
